FAERS Safety Report 4634941-7 (Version None)
Quarter: 2005Q2

REPORT INFORMATION
  Report Type: 
  Country: None (occurrence: None)
  Receive Date: 20050414
  Receipt Date: 20050411
  Transmission Date: 20051028
  Serious: Yes (Other)
  Sender: FDA-Public Use
  Company Number: PHNR2005AU00726

PATIENT
  Age: 49 Year
  Sex: Female
  Weight: 61 kg

DRUGS (2)
  1. LAMISIL [Suspect]
     Indication: SYSTEMIC MYCOSIS
     Dosage: 250 MG/DAY
     Route: 048
     Dates: start: 20040728, end: 20040901
  2. CLAMOXYL DUO FORTE [Concomitant]
     Indication: OEDEMA
     Dosage: 2  (DOSE UNSPECIFIED)/DAY
     Route: 048
     Dates: start: 20040711, end: 20040718

REACTIONS (10)
  - ALOPECIA [None]
  - ANOREXIA [None]
  - DRY MOUTH [None]
  - DYSPEPSIA [None]
  - ERUCTATION [None]
  - INFLUENZA LIKE ILLNESS [None]
  - NAUSEA [None]
  - STOMACH DISCOMFORT [None]
  - STRESS [None]
  - WEIGHT DECREASED [None]
